FAERS Safety Report 10262687 (Version 2)
Quarter: 2014Q2

REPORT INFORMATION
  Report Type: Report from Study
  Country: US (occurrence: US)
  Receive Date: 20140626
  Receipt Date: 20140626
  Transmission Date: 20141212
  Serious: Yes (Other)
  Sender: FDA-Public Use
  Company Number: US-MYLANLABS-2013S1011744

PATIENT
  Age: 18 Year
  Sex: Male

DRUGS (6)
  1. CLOZAPINE TABLETS [Suspect]
     Dates: end: 2013
  2. CLOZAPINE TABLETS [Suspect]
     Dates: start: 2013
  3. CLOZAPINE TABLETS [Suspect]
     Dates: start: 2013, end: 20130708
  4. CLOZAPINE TABLETS [Suspect]
     Dates: start: 20130821, end: 20130915
  5. CLOZAPINE TABLETS [Suspect]
     Dates: start: 20130916
  6. CLOZAPINE TABLETS [Suspect]
     Dates: start: 20130916

REACTIONS (1)
  - Granulocytopenia [Not Recovered/Not Resolved]
